FAERS Safety Report 5322052-7 (Version None)
Quarter: 2007Q2

REPORT INFORMATION
  Report Type: 
  Country: None (occurrence: None)
  Receive Date: 20070507
  Receipt Date: 20070419
  Transmission Date: 20071010
  Serious: Yes (Death)
  Sender: FDA-Public Use
  Company Number: 6032472

PATIENT
  Age: 70 Year
  Sex: Female

DRUGS (3)
  1. METFORMIN (TABLET) (METFORMIN) [Suspect]
     Indication: DIABETES MELLITUS
  2. CONTRAST MEDIA [Suspect]
     Dosage: LONG TIME
     Route: 048
  3. GLYBURIDE [Concomitant]

REACTIONS (5)
  - ABDOMINAL PAIN [None]
  - HYPERTENSION [None]
  - HYPOGLYCAEMIA [None]
  - LACTIC ACIDOSIS [None]
  - LOSS OF CONSCIOUSNESS [None]
